FAERS Safety Report 8541355-6 (Version None)
Quarter: 2012Q3

REPORT INFORMATION
  Report Type: 
  Country: None (occurrence: None)
  Receive Date: 20120726
  Receipt Date: 20110922
  Transmission Date: 20120928
  Serious: No
  Sender: FDA-Public Use
  Company Number: US-ASTRAZENECA-2011SE56913

PATIENT
  Age: 63 Year
  Sex: Female
  Weight: 81.6 kg

DRUGS (4)
  1. SEROQUEL XR [Suspect]
     Indication: BIPOLAR DISORDER
     Route: 048
  2. EXXOR [Concomitant]
  3. DEPAKOTE [Concomitant]
  4. ATIVAN [Concomitant]

REACTIONS (3)
  - DEPRESSED MOOD [None]
  - SOMNOLENCE [None]
  - CONDITION AGGRAVATED [None]
